FAERS Safety Report 5663248-4 (Version None)
Quarter: 2008Q1

REPORT INFORMATION
  Report Type: 
  Country: None (occurrence: None)
  Receive Date: 20080313
  Receipt Date: 20080305
  Transmission Date: 20080703
  Serious: Yes (Other)
  Sender: FDA-Public Use
  Company Number: ES-WYE-G01194108

PATIENT
  Age: 39 Year
  Sex: Male

DRUGS (2)
  1. TAZOCEL [Suspect]
     Indication: PNEUMONIA
     Dosage: 12.2 G
     Route: 042
     Dates: start: 20071022, end: 20071102
  2. LEVOFLOXACIN [Suspect]
     Route: 042
     Dates: start: 20071022, end: 20071102

REACTIONS (2)
  - ARTHRALGIA [None]
  - TENDONITIS [None]
